FAERS Safety Report 13758038 (Version 1)
Quarter: 2017Q3

REPORT INFORMATION
  Report Type: Spontaneous
  Country: CZ (occurrence: CZ)
  Receive Date: 20170717
  Receipt Date: 20170717
  Transmission Date: 20171127
  Serious: Yes (Life-Threatening, Other)
  Sender: FDA-Public Use
  Company Number: CZ-009507513-1706CZE011210

PATIENT
  Sex: Male
  Weight: 78 kg

DRUGS (11)
  1. BERODUAL [Concomitant]
     Active Substance: FENOTEROL HYDROBROMIDE\IPRATROPIUM BROMIDE
     Dosage: UNK, TID
  2. SEEBRI [Concomitant]
     Active Substance: GLYCOPYRRONIUM
     Dosage: 44 MICROGRAM, QD
     Route: 048
  3. ZALDIAR [Concomitant]
     Active Substance: ACETAMINOPHEN\TRAMADOL HYDROCHLORIDE
     Dosage: 37/325 MG TABLET, TID
     Route: 048
  4. PARALEN [Concomitant]
     Active Substance: ACETAMINOPHEN
  5. KEYTRUDA [Suspect]
     Active Substance: PEMBROLIZUMAB
     Indication: LUNG ADENOCARCINOMA
     Dosage: UNK
     Route: 042
     Dates: start: 20170619, end: 20170619
  6. DIASIP [Concomitant]
     Dosage: UNK UNK, TID
     Route: 048
  7. ROSUCARD [Concomitant]
     Active Substance: ROSUVASTATIN CALCIUM
     Dosage: 20 MG TABLET, QD
     Route: 048
  8. MUCOSOLVAN [Concomitant]
     Active Substance: AMBROXOL HYDROCHLORIDE
     Dosage: UNK, BID
  9. LOKREN [Concomitant]
     Active Substance: BETAXOLOL HYDROCHLORIDE
     Dosage: 0.5 TABLET, QD
     Route: 048
  10. SIOFOR [Concomitant]
     Active Substance: METFORMIN HYDROCHLORIDE
     Dosage: 500 MG TABLET, BID
     Route: 048
  11. ANALGIN [Concomitant]
     Active Substance: METAMIZOLE SODIUM
     Dosage: 1 AMP I.V. AT 1 PM
     Route: 042

REACTIONS (4)
  - Pleurisy [Unknown]
  - Arteriospasm coronary [Recovering/Resolving]
  - Systemic inflammatory response syndrome [Unknown]
  - Cardiac disorder [Unknown]

NARRATIVE: CASE EVENT DATE: 201706
